FAERS Safety Report 21868919 (Version 2)
Quarter: 2023Q1

REPORT INFORMATION
  Report Type: Spontaneous
  Country: US (occurrence: US)
  Receive Date: 20230117
  Receipt Date: 20230209
  Transmission Date: 20230418
  Serious: No
  Sender: FDA-Public Use
  Company Number: US-ELI_LILLY_AND_COMPANY-US202212012991

PATIENT
  Sex: Female

DRUGS (7)
  1. TADALAFIL [Suspect]
     Active Substance: TADALAFIL
     Indication: Pulmonary arterial hypertension
     Dosage: UNK UNK, UNKNOWN
     Route: 065
     Dates: end: 202212
  2. REMODULIN [Suspect]
     Active Substance: TREPROSTINIL
     Indication: Pulmonary arterial hypertension
     Dosage: UNK, UNKNOWN
     Route: 042
  3. REMODULIN [Suspect]
     Active Substance: TREPROSTINIL
     Dosage: 26 NG, OTHER, 26 NG/KG/MIN
     Route: 042
  4. REMODULIN [Suspect]
     Active Substance: TREPROSTINIL
     Dosage: 30 NG, OTHER, 30 NG/KG/MIN CONTINUOUS
     Route: 042
     Dates: start: 202211
  5. REMODULIN [Suspect]
     Active Substance: TREPROSTINIL
     Dosage: UNK UNK, OTHER (42 NG/KG/MIN)
     Route: 042
  6. AMBRISENTAN [Suspect]
     Active Substance: AMBRISENTAN
     Indication: Product used for unknown indication
     Dosage: UNK, UNKNOWN
     Route: 065
     Dates: end: 202212
  7. TYLENOL [Concomitant]
     Active Substance: ACETAMINOPHEN
     Indication: Product used for unknown indication
     Dosage: UNK, PRN
     Route: 065

REACTIONS (5)
  - Oxygen saturation decreased [Unknown]
  - Blood test abnormal [Unknown]
  - Headache [Unknown]
  - Palpitations [Unknown]
  - Pain in extremity [Recovered/Resolved]
